FAERS Safety Report 8135706-4 (Version None)
Quarter: 2012Q1

REPORT INFORMATION
  Report Type: 
  Country: None (occurrence: None)
  Receive Date: 20120214
  Receipt Date: 20120202
  Transmission Date: 20120608
  Serious: Yes (Other)
  Sender: FDA-Public Use
  Company Number: FR-UCBSA-040900

PATIENT
  Sex: Female

DRUGS (2)
  1. NO CONCOMITANT MEDICATION [Concomitant]
  2. NEUPRO [Suspect]
     Route: 062

REACTIONS (1)
  - HALLUCINATION [None]
